FAERS Safety Report 6689855-8 (Version None)
Quarter: 2010Q2

REPORT INFORMATION
  Report Type: 
  Country: None (occurrence: None)
  Receive Date: 20100421
  Receipt Date: 20100416
  Transmission Date: 20101027
  Serious: Yes (Life-Threatening)
  Sender: FDA-Public Use
  Company Number: GB-BRISTOL-MYERS SQUIBB COMPANY-15067275

PATIENT
  Sex: Male

DRUGS (3)
  1. PRAVASTATIN SODIUM [Suspect]
     Indication: PROPHYLAXIS
     Route: 048
     Dates: start: 20100202, end: 20100326
  2. ASPIRIN [Concomitant]
     Indication: PROPHYLAXIS
     Route: 048
     Dates: start: 20090804
  3. ZUCLOPENTHIXOL DECANOATE [Concomitant]
     Indication: SCHIZOPHRENIA
     Route: 030
     Dates: start: 20090701

REACTIONS (4)
  - DEPRESSION [None]
  - FATIGUE [None]
  - SLEEP DISORDER [None]
  - SUICIDAL IDEATION [None]
